FAERS Safety Report 9575467 (Version 1)
Quarter: 2013Q4

REPORT INFORMATION
  Report Type: Spontaneous
  Country: US (occurrence: US)
  Receive Date: 20131001
  Receipt Date: 20131001
  Transmission Date: 20140711
  Serious: No
  Sender: FDA-Public Use
  Company Number: US-AMGEN-USASP2012083494

PATIENT
  Sex: Female
  Weight: 81.63 kg

DRUGS (5)
  1. ENBREL [Suspect]
     Indication: RHEUMATOID ARTHRITIS
     Dosage: 50 MG, QWK
     Route: 058
  2. METHOTREXATE [Concomitant]
     Dosage: 2.5 MG, UNK
  3. LIPITOR [Concomitant]
     Dosage: 10 MG, UNK
  4. FOLIC ACID [Concomitant]
     Dosage: UNK
  5. VIVELLE                            /00045401/ [Concomitant]
     Dosage: 0.1 MG, UNK

REACTIONS (1)
  - Drug ineffective [Unknown]
